FAERS Safety Report 7982913-7 (Version None)
Quarter: 2011Q4

REPORT INFORMATION
  Report Type: 
  Country: None (occurrence: None)
  Receive Date: 20111215
  Receipt Date: 20111213
  Transmission Date: 20120403
  Serious: Yes (Life-Threatening, Hospitalization, Other)
  Sender: FDA-Public Use
  Company Number: JP-BRACCO-005423

PATIENT
  Sex: Male
  Weight: 68 kg

DRUGS (5)
  1. HYDROCORTISONE SODIUM SUCCINATE [Concomitant]
     Dosage: AT 2:10PM
     Dates: start: 20111104, end: 20111104
  2. IOPAMIDOL [Suspect]
     Indication: METASTASES TO LIVER
     Dosage: ADMINISTERED AT 2ML/SEC FOR 50 SECONDS
     Route: 042
     Dates: start: 20111104, end: 20111104
  3. SALINE [Concomitant]
     Dosage: GIVEN AT 2:10 PM
     Dates: start: 20111104, end: 20111104
  4. IOPAMIDOL [Suspect]
     Indication: COLON CANCER
     Dosage: ADMINISTERED AT 2ML/SEC FOR 50 SECONDS
     Route: 042
     Dates: start: 20111104, end: 20111104
  5. IOPAMIDOL [Suspect]
     Indication: COMPUTERISED TOMOGRAM
     Dosage: ADMINISTERED AT 2ML/SEC FOR 50 SECONDS
     Route: 042
     Dates: start: 20111104, end: 20111104

REACTIONS (3)
  - HAEMOTHORAX [None]
  - MEDIASTINAL HAEMATOMA [None]
  - ANAPHYLACTOID REACTION [None]
